FAERS Safety Report 26001470 (Version 1)
Quarter: 2025Q4

REPORT INFORMATION
  Report Type: Spontaneous
  Country: CN (occurrence: CN)
  Receive Date: 20251105
  Receipt Date: 20251105
  Transmission Date: 20260118
  Serious: Yes (Life-Threatening, Hospitalization, Other)
  Sender: BAYER HEALTHCARE PHARMACEUTICALS INC.
  Company Number: CN-BAYER-2025A146032

PATIENT
  Age: 85 Year
  Sex: Female
  Weight: 49.7 kg

DRUGS (1)
  1. AVELOX [Suspect]
     Active Substance: MOXIFLOXACIN HYDROCHLORIDE
     Indication: Febrile infection
     Dosage: 0.4 G, QD
     Route: 041
     Dates: start: 20251023, end: 20251029

REACTIONS (6)
  - Atrial fibrillation [Recovered/Resolved]
  - Blood pressure decreased [Recovered/Resolved]
  - Atrial tachycardia [Recovered/Resolved]
  - Respiratory rate increased [Recovered/Resolved]
  - Product prescribing issue [None]
  - Drug effective for unapproved indication [None]

NARRATIVE: CASE EVENT DATE: 20251023
